FAERS Safety Report 10167717 (Version 2)
Quarter: 2014Q2

REPORT INFORMATION
  Report Type: Spontaneous
  Country: TW (occurrence: TW)
  Receive Date: 20140512
  Receipt Date: 20140617
  Transmission Date: 20141212
  Serious: Yes (Death, Hospitalization)
  Sender: FDA-Public Use
  Company Number: TW-PFIZER INC-2014124590

PATIENT
  Sex: Male

DRUGS (1)
  1. SUTENT [Suspect]
     Indication: GASTROINTESTINAL STROMAL TUMOUR
     Dosage: 37.5 MG (THREE CAPSULES OF 12.5 MG) ONCE DAILY, TWO WEEKS ON AND ONE WEEK OFF
     Route: 048
     Dates: start: 20130830

REACTIONS (3)
  - Death [Fatal]
  - Dizziness [Unknown]
  - Cardiac disorder [Unknown]
